FAERS Safety Report 20702356 (Version 1)
Quarter: 2022Q2

REPORT INFORMATION
  Report Type: Spontaneous
  Country: US (occurrence: US)
  Receive Date: 20220412
  Receipt Date: 20220412
  Transmission Date: 20220721
  Serious: No
  Sender: FDA-Public Use
  Company Number: US-PFIZER INC-202101212808

PATIENT
  Age: 64 Year
  Sex: Female
  Weight: 54.422 kg

DRUGS (1)
  1. IBRANCE [Suspect]
     Active Substance: PALBOCICLIB
     Dosage: 125 MG, DAILY (DAILY 21 DAYS)
     Route: 048
     Dates: start: 20210707

REACTIONS (6)
  - Fatigue [Unknown]
  - Hair growth abnormal [Unknown]
  - Dyspnoea [Unknown]
  - Inhibin B increased [Recovered/Resolved]
  - Inhibin A increased [Unknown]
  - Fatigue [Unknown]
